FAERS Safety Report 16444132 (Version 1)
Quarter: 2019Q2

REPORT INFORMATION
  Report Type: Report from Study
  Country: None (occurrence: DE)
  Receive Date: 20190618
  Receipt Date: 20190618
  Transmission Date: 20190711
  Serious: Yes (Hospitalization)
  Sender: FDA-Public Use
  Company Number: DE-ABBVIE-19K-062-2818039-00

PATIENT
  Sex: Male
  Weight: 68 kg

DRUGS (5)
  1. HUMIRA [Suspect]
     Active Substance: ADALIMUMAB
     Indication: RHEUMATOID ARTHRITIS
     Route: 058
     Dates: start: 20150727
  2. LEVETIRACETAM. [Concomitant]
     Active Substance: LEVETIRACETAM
     Indication: EPILEPSY
     Route: 048
     Dates: start: 1994
  3. FOLIC ACID. [Concomitant]
     Active Substance: FOLIC ACID
     Indication: DETOXIFICATION
     Route: 048
     Dates: start: 2015
  4. PREDNISOLON [Concomitant]
     Active Substance: PREDNISOLONE
     Indication: RHEUMATIC DISORDER
     Route: 048
     Dates: start: 2014
  5. LANTAREL [Concomitant]
     Active Substance: METHOTREXATE SODIUM
     Indication: RHEUMATIC DISORDER
     Route: 048
     Dates: start: 2015

REACTIONS (4)
  - Blister [Recovered/Resolved]
  - Tendon rupture [Not Recovered/Not Resolved]
  - Mobility decreased [Unknown]
  - Pain [Unknown]

NARRATIVE: CASE EVENT DATE: 2015
